FAERS Safety Report 6503614-8 (Version None)
Quarter: 2009Q4

REPORT INFORMATION
  Report Type: 
  Country: None (occurrence: None)
  Receive Date: 20091217
  Receipt Date: 20091207
  Transmission Date: 20100525
  Serious: Yes (Life-Threatening, Other)
  Sender: FDA-Public Use
  Company Number: US-ELI_LILLY_AND_COMPANY-US200912002091

PATIENT
  Sex: Male

DRUGS (8)
  1. ZYPREXA [Suspect]
     Indication: AGITATION
     Dosage: 10 MG, AS NEEDED
     Route: 030
     Dates: start: 20091201, end: 20091204
  2. ATIVAN [Concomitant]
     Indication: AGITATION
     Dosage: UNK, AS NEEDED
  3. LIPITOR [Concomitant]
     Dosage: 20 MG, UNK
  4. LOPRESSOR [Concomitant]
     Dosage: 25 MG, 2/D
  5. LISINOPRIL [Concomitant]
     Dosage: 20 MG, UNK
  6. ASPIRIN [Concomitant]
     Dosage: 81 MG, DAILY (1/D)
  7. LOVENOX [Concomitant]
     Dosage: 30 MG, 2/D
  8. NEXIUM [Concomitant]
     Dosage: 40 MG, UNK
     Route: 042

REACTIONS (2)
  - OFF LABEL USE [None]
  - RESPIRATORY FAILURE [None]
